FAERS Safety Report 7590379-4 (Version None)
Quarter: 2011Q3

REPORT INFORMATION
  Report Type: 
  Country: None (occurrence: None)
  Receive Date: 20110705
  Receipt Date: 20110621
  Transmission Date: 20111222
  Serious: Yes (Death)
  Sender: FDA-Public Use
  Company Number: CN-BAYER-2011-056225

PATIENT
  Age: 54 Year
  Sex: Male

DRUGS (1)
  1. ULTRAVIST 150 [Suspect]
     Indication: COMPUTERISED TOMOGRAM
     Dosage: UNK
     Dates: start: 20110615, end: 20110615

REACTIONS (4)
  - DIZZINESS [None]
  - MYOCARDIAL INFARCTION [None]
  - HYPOAESTHESIA [None]
  - EYELID OEDEMA [None]
